FAERS Safety Report 4966107-5 (Version None)
Quarter: 2006Q2

REPORT INFORMATION
  Report Type: 
  Country: None (occurrence: None)
  Receive Date: 20060403
  Receipt Date: 20060321
  Transmission Date: 20061013
  Serious: Yes (Hospitalization, Other)
  Sender: FDA-Public Use
  Company Number: 8011641

PATIENT
  Age: 12 Year
  Sex: Female
  Weight: 38.1 kg

DRUGS (5)
  1. KEPPRA [Suspect]
     Indication: CONVULSION
     Dosage: 250 MG 2/D PO
     Route: 048
     Dates: start: 20050629, end: 20050818
  2. KEPPRA [Suspect]
     Indication: CONVULSION
     Dosage: 250 MG PO
     Route: 048
     Dates: start: 20050819, end: 20050101
  3. ATIVAN [Concomitant]
  4. PATANOL [Concomitant]
  5. TRILEPTAL [Concomitant]

REACTIONS (11)
  - BRUXISM [None]
  - CONDITION AGGRAVATED [None]
  - DECREASED APPETITE [None]
  - GRAND MAL CONVULSION [None]
  - HICCUPS [None]
  - IRRITABILITY [None]
  - LETHARGY [None]
  - PYREXIA [None]
  - RASH [None]
  - SEDATION [None]
  - VOMITING [None]
